FAERS Safety Report 7081512-1 (Version None)
Quarter: 2010Q4

REPORT INFORMATION
  Report Type: 
  Country: None (occurrence: None)
  Receive Date: 20101103
  Receipt Date: 20101020
  Transmission Date: 20110411
  Serious: Yes (Other)
  Sender: FDA-Public Use
  Company Number: JP-GENZYME-FLUD-1000342

PATIENT

DRUGS (2)
  1. FLUDARA [Suspect]
     Indication: STEM CELL TRANSPLANT
     Dosage: UNK
     Route: 065
  2. FLUDARA [Suspect]
     Indication: BONE MARROW CONDITIONING REGIMEN

REACTIONS (4)
  - ENCEPHALOMYELITIS [None]
  - HUMAN HERPESVIRUS 6 INFECTION [None]
  - POST TRANSPLANT DISTAL LIMB SYNDROME [None]
  - TYPE III IMMUNE COMPLEX MEDIATED REACTION [None]
